FAERS Safety Report 8010003-6 (Version None)
Quarter: 2011Q4

REPORT INFORMATION
  Report Type: 
  Country: None (occurrence: None)
  Receive Date: 20111228
  Receipt Date: 20111214
  Transmission Date: 20120403
  Serious: Yes (Hospitalization)
  Sender: FDA-Public Use
  Company Number: US-ELI_LILLY_AND_COMPANY-US201104008211

PATIENT
  Age: 72 Year
  Sex: Female

DRUGS (4)
  1. CRESTOR [Concomitant]
     Indication: BLOOD CHOLESTEROL INCREASED
  2. FORTEO [Suspect]
     Indication: OSTEOPOROSIS
     Dosage: 20 UG, QD
     Route: 065
     Dates: start: 20110101
  3. FORTEO [Suspect]
     Dosage: 20 UG, UNK
     Dates: end: 20111101
  4. FORTEO [Suspect]
     Dosage: 20 UG, QD
     Route: 065

REACTIONS (8)
  - MUSCLE SPASMS [None]
  - MALAISE [None]
  - CRYING [None]
  - GASTROENTERITIS [None]
  - FATIGUE [None]
  - CATARACT OPERATION [None]
  - INSOMNIA [None]
  - SMALL INTESTINAL OBSTRUCTION [None]
